FAERS Safety Report 13558496 (Version 2)
Quarter: 2017Q3

REPORT INFORMATION
  Report Type: Report from Study
  Country: None (occurrence: US)
  Receive Date: 20170517
  Receipt Date: 20170812
  Transmission Date: 20171127
  Serious: Yes (Other)
  Sender: FDA-Public Use
  Company Number: US-ABBVIE-17P-163-1975273-00

PATIENT
  Age: 48 Year
  Sex: Female

DRUGS (2)
  1. LUPRON DEPOT [Suspect]
     Active Substance: LEUPROLIDE ACETATE
     Route: 030
     Dates: start: 20170418
  2. LUPRON DEPOT [Suspect]
     Active Substance: LEUPROLIDE ACETATE
     Indication: ENDOMETRIOSIS
     Route: 030
     Dates: start: 1999, end: 1999

REACTIONS (10)
  - Laparotomy [Unknown]
  - Haemorrhage [Recovering/Resolving]
  - Abdominal pain [Recovering/Resolving]
  - Anxiety [Recovering/Resolving]
  - Gastrooesophageal reflux disease [Unknown]
  - Endometriosis [Recovering/Resolving]
  - Dysmenorrhoea [Not Recovered/Not Resolved]
  - Uterine leiomyoma [Recovered/Resolved]
  - Seasonal allergy [Recovering/Resolving]
  - Pelvic pain [Not Recovered/Not Resolved]

NARRATIVE: CASE EVENT DATE: 2015
